FAERS Safety Report 21624410 (Version 2)
Quarter: 2023Q2

REPORT INFORMATION
  Report Type: Report from Study
  Country: US (occurrence: US)
  Receive Date: 20221121
  Receipt Date: 20230519
  Transmission Date: 20230722
  Serious: No
  Sender: FDA-Public Use
  Company Number: US-ABBVIE-4158054

PATIENT
  Sex: Female
  Weight: 70.306 kg

DRUGS (3)
  1. HUMIRA [Suspect]
     Active Substance: ADALIMUMAB
     Indication: Rheumatoid arthritis
     Dosage: FORM STRENGTH: 40 MG
     Route: 058
     Dates: start: 2021
  2. HUMIRA [Suspect]
     Active Substance: ADALIMUMAB
     Dosage: FORM STRENGTH: 40 MG
     Route: 058
     Dates: start: 2017, end: 2021
  3. METHOTREXATE [Suspect]
     Active Substance: METHOTREXATE
     Indication: Product used for unknown indication
     Route: 065

REACTIONS (6)
  - Alopecia [Not Recovered/Not Resolved]
  - Sinusitis [Recovered/Resolved]
  - Gait disturbance [Recovering/Resolving]
  - Cystitis [Recovered/Resolved]
  - Bladder disorder [Not Recovered/Not Resolved]
  - Hypertonic bladder [Unknown]

NARRATIVE: CASE EVENT DATE: 20210101
